FAERS Safety Report 20310662 (Version 1)
Quarter: 2022Q1

REPORT INFORMATION
  Report Type: Spontaneous
  Country: US (occurrence: None)
  Receive Date: 20220107
  Receipt Date: 20220107
  Transmission Date: 20220424
  Serious: Yes (Other)
  Sender: FDA-Public Use
  Company Number: None

PATIENT
  Age: 74 Year
  Sex: Male
  Weight: 76.8 kg

DRUGS (1)
  1. CARFILZOMIB [Suspect]
     Active Substance: CARFILZOMIB
     Indication: Plasma cell myeloma
     Dates: start: 20220105, end: 20220105

REACTIONS (7)
  - Nausea [None]
  - Vomiting [None]
  - Chills [None]
  - Tremor [None]
  - Hyperhidrosis [None]
  - Muscular weakness [None]
  - Fall [None]

NARRATIVE: CASE EVENT DATE: 20220106
